FAERS Safety Report 17693707 (Version 2)
Quarter: 2020Q2

REPORT INFORMATION
  Report Type: Spontaneous
  Country: US (occurrence: US)
  Receive Date: 20200422
  Receipt Date: 20200424
  Transmission Date: 20200714
  Serious: Yes (Other)
  Sender: FDA-Public Use
  Company Number: US-PFIZER INC-2020158004

PATIENT
  Age: 65 Year
  Sex: Female

DRUGS (1)
  1. MYCOBUTIN [Suspect]
     Active Substance: RIFABUTIN
     Dosage: 150 MG, UNK

REACTIONS (1)
  - Pneumonia [Unknown]
